FAERS Safety Report 8834763 (Version 2)
Quarter: 2012Q4

REPORT INFORMATION
  Report Type: Spontaneous
  Country: MX (occurrence: None)
  Receive Date: 20121009
  Receipt Date: 20121031
  Transmission Date: 20130627
  Serious: Yes (Other)
  Sender: FDA-Public Use
  Company Number: AUR-APL-2012-04359

PATIENT
  Age: 38 Year
  Sex: Male

DRUGS (6)
  1. ZIDOVUDINE [Suspect]
     Indication: ANTIRETROVIRAL THERAPY
  2. EFAVIRENZ [Suspect]
     Indication: ANTIRETROVIRAL THERAPY
  3. LAMIVUDINE [Suspect]
     Indication: ANTIRETROVIRAL THERAPY
  4. FLUCONAZOLE (FLUCONAZOLE) [Concomitant]
  5. COTRIMOXAZOLE (BACTRIM) [Concomitant]
  6. AMPHOTERICIN B(AMPHOTERICIN B) [Concomitant]

REACTIONS (7)
  - Immune reconstitution inflammatory syndrome [None]
  - Headache [None]
  - Pyramidal tract syndrome [None]
  - Hemiparesis [None]
  - Cerebral ischaemia [None]
  - Vasculitis cerebral [None]
  - Cryptococcosis [None]
